FAERS Safety Report 5370863-4 (Version None)
Quarter: 2007Q2

REPORT INFORMATION
  Report Type: 
  Country: None (occurrence: None)
  Receive Date: 20070614
  Receipt Date: 20070413
  Transmission Date: 20071010
  Serious: No
  Sender: FDA-Public Use
  Company Number: BDI-009390

PATIENT
  Age: 26 Year
  Sex: Female
  Weight: 75 kg

DRUGS (2)
  1. MULITHANCE (GADOBENIC ACID), BRACCO [Suspect]
     Indication: HEADACHE
     Dosage: 16 ML, ONCE IV
     Route: 042
     Dates: start: 20070413, end: 20070413
  2. MULITHANCE (GADOBENIC ACID), BRACCO [Suspect]
     Indication: SCAN BRAIN
     Dosage: 16 ML, ONCE IV
     Route: 042
     Dates: start: 20070413, end: 20070413

REACTIONS (1)
  - HYPERSENSITIVITY [None]
